FAERS Safety Report 20714935 (Version 2)
Quarter: 2022Q2

REPORT INFORMATION
  Report Type: Spontaneous
  Country: US (occurrence: US)
  Receive Date: 20220415
  Receipt Date: 20220429
  Transmission Date: 20220721
  Serious: Yes (Hospitalization)
  Sender: FDA-Public Use
  Company Number: US-BRISTOL-MYERS SQUIBB COMPANY-2022-016974

PATIENT
  Age: 51 Year
  Sex: Female

DRUGS (1)
  1. REVLIMID [Suspect]
     Active Substance: LENALIDOMIDE
     Indication: Plasma cell myeloma
     Route: 048
     Dates: start: 20220307

REACTIONS (6)
  - Diarrhoea [Recovering/Resolving]
  - Dehydration [Unknown]
  - Joint swelling [Unknown]
  - Amnesia [Unknown]
  - Rhinorrhoea [Unknown]
  - Feeling abnormal [Unknown]
